FAERS Safety Report 8223898-8 (Version None)
Quarter: 2012Q1

REPORT INFORMATION
  Report Type: 
  Country: None (occurrence: None)
  Receive Date: 20120321
  Receipt Date: 20120309
  Transmission Date: 20120608
  Serious: Yes (Other)
  Sender: FDA-Public Use
  Company Number: JP-PFIZER INC-2012066334

PATIENT
  Age: 46 Year
  Sex: Male

DRUGS (3)
  1. CLARITIN REDITABS [Concomitant]
     Indication: SEASONAL ALLERGY
     Dosage: UNK
     Route: 048
     Dates: start: 20120114
  2. LIPITOR [Suspect]
     Dosage: 10 MG, DAILY
     Route: 048
     Dates: start: 20050806, end: 20120217
  3. LANSOPRAZOLE [Concomitant]
     Dosage: UNK
     Route: 048
     Dates: start: 20050401

REACTIONS (2)
  - BLOOD POTASSIUM INCREASED [None]
  - BLOOD POTASSIUM ABNORMAL [None]
